FAERS Safety Report 6590767-9 (Version None)
Quarter: 2010Q1

REPORT INFORMATION
  Report Type: 
  Country: None (occurrence: None)
  Receive Date: 20100204
  Receipt Date: 20100114
  Transmission Date: 20100710
  Serious: No
  Sender: FDA-Public Use
  Company Number: 2010-00045

PATIENT
  Age: 55 Year
  Sex: Male
  Weight: 99.7913 kg

DRUGS (5)
  1. COLD REMEDY NASAL GEL [Suspect]
     Dosage: BID OVER 10 YEARS
     Dates: start: 19970101, end: 20070101
  2. BENICART [Concomitant]
  3. ZOLOFT [Concomitant]
  4. PRILOSEC [Concomitant]
  5. GLUCOSAMINE [Concomitant]

REACTIONS (1)
  - ANOSMIA [None]
